FAERS Safety Report 17181016 (Version 3)
Quarter: 2021Q4

REPORT INFORMATION
  Report Type: Report from Study
  Country: US (occurrence: US)
  Receive Date: 20191219
  Receipt Date: 20211217
  Transmission Date: 20220304
  Serious: No
  Sender: FDA-Public Use
  Company Number: US-SHIRE-US201943962

PATIENT
  Sex: Female
  Weight: 59.864 kg

DRUGS (17)
  1. HUMAN IMMUNOGLOBULIN G [Suspect]
     Active Substance: HUMAN IMMUNOGLOBULIN G
     Indication: Immunodeficiency common variable
     Dosage: 6 GRAM, Q2WEEKS
     Route: 058
     Dates: start: 20190826
  2. HUMAN IMMUNOGLOBULIN G [Suspect]
     Active Substance: HUMAN IMMUNOGLOBULIN G
     Dosage: 6 GRAM, Q2WEEKS
     Route: 058
     Dates: start: 20190806
  3. SYNTHROID [Concomitant]
     Active Substance: LEVOTHYROXINE SODIUM
     Indication: Product used for unknown indication
  4. DIPHENHYDRAMINE [Concomitant]
     Active Substance: DIPHENHYDRAMINE
     Indication: Product used for unknown indication
  5. ACETAMINOPHEN [Concomitant]
     Active Substance: ACETAMINOPHEN
     Indication: Product used for unknown indication
  6. LMX4 [Concomitant]
     Active Substance: LIDOCAINE
     Indication: Product used for unknown indication
  7. EPINEPHRINE [Concomitant]
     Active Substance: EPINEPHRINE
     Indication: Product used for unknown indication
  8. MINERALS\VITAMINS [Concomitant]
     Active Substance: MINERALS\VITAMINS
     Indication: Product used for unknown indication
  9. RANITIDINE [Concomitant]
     Active Substance: RANITIDINE
     Indication: Product used for unknown indication
  10. BENZALKONIUM CHLORIDE\SODIUM CHLORIDE [Concomitant]
     Active Substance: BENZALKONIUM CHLORIDE\SODIUM CHLORIDE
  11. LORADAMED [Concomitant]
  12. BAYER ASPIRIN [Concomitant]
     Active Substance: ASPIRIN
  13. FAMOTIDINE [Concomitant]
     Active Substance: FAMOTIDINE
  14. BENADRYL [Concomitant]
     Active Substance: DIPHENHYDRAMINE HYDROCHLORIDE
  15. OMEPRAZOLE [Concomitant]
     Active Substance: OMEPRAZOLE
  16. VITAMIN D [Concomitant]
     Active Substance: VITAMIN D NOS
  17. LIDOCAINE [Concomitant]
     Active Substance: LIDOCAINE

REACTIONS (4)
  - Skin discomfort [Unknown]
  - Infusion site haemorrhage [Unknown]
  - Infusion site pain [Unknown]
  - Circumstance or information capable of leading to medication error [Unknown]
